FAERS Safety Report 13455971 (Version 2)
Quarter: 2017Q2

REPORT INFORMATION
  Report Type: Spontaneous
  Country: US (occurrence: US)
  Receive Date: 20170419
  Receipt Date: 20170517
  Transmission Date: 20170830
  Serious: No
  Sender: FDA-Public Use
  Company Number: US-BAYER-2017-074994

PATIENT
  Age: 67 Year
  Sex: Male
  Weight: 111.57 kg

DRUGS (2)
  1. GADAVIST [Suspect]
     Active Substance: GADOBUTROL
     Indication: SPINAL CORD INFECTION
  2. GADAVIST [Suspect]
     Active Substance: GADOBUTROL
     Indication: SPINAL MYELOGRAM
     Dosage: 10 ML, ONCE
     Route: 042
     Dates: start: 20170417, end: 20170417

REACTIONS (1)
  - Urticaria [Recovered/Resolved]

NARRATIVE: CASE EVENT DATE: 20170417
